FAERS Safety Report 8577311-1 (Version None)
Quarter: 2012Q3

REPORT INFORMATION
  Report Type: 
  Country: None (occurrence: None)
  Receive Date: 20120807
  Receipt Date: 20120802
  Transmission Date: 20120928
  Serious: Yes (Death, Other)
  Sender: FDA-Public Use
  Company Number: BE-ELI_LILLY_AND_COMPANY-BE201208001064

PATIENT
  Age: 62 Year
  Sex: Male

DRUGS (1)
  1. EFFIENT [Suspect]
     Indication: PERCUTANEOUS CORONARY INTERVENTION
     Dosage: UNK, UNKNOWN
     Route: 065

REACTIONS (3)
  - DEATH [None]
  - HAEMORRHAGE INTRACRANIAL [None]
  - NECK PAIN [None]
